FAERS Safety Report 4836702-2 (Version None)
Quarter: 2005Q4

REPORT INFORMATION
  Report Type: 
  Country: None (occurrence: None)
  Receive Date: 20051121
  Receipt Date: 20051111
  Transmission Date: 20060501
  Serious: Yes (Other)
  Sender: FDA-Public Use
  Company Number: 219516

PATIENT
  Age: 76 Year
  Sex: Female

DRUGS (3)
  1. ACTILYSE(ALTEPLASE) PWDR + SOLVENT, INFUSION SOLN, 100MG [Suspect]
     Indication: RETINAL HAEMORRHAGE
     Dosage: 0.1 ML, INTRAVITREAL; SEE IMAGE
  2. TETRACAINE (TETRACAINE) [Concomitant]
  3. POVIDONE IODINE [Concomitant]

REACTIONS (6)
  - ENDOPHTHALMITIS [None]
  - PHARMACEUTICAL PRODUCT COMPLAINT [None]
  - POOR QUALITY DRUG ADMINISTERED [None]
  - PROCEDURAL COMPLICATION [None]
  - PROPIONIBACTERIUM INFECTION [None]
  - STREPTOCOCCAL INFECTION [None]
